FAERS Safety Report 8121504-4 (Version None)
Quarter: 2012Q1

REPORT INFORMATION
  Report Type: 
  Country: None (occurrence: None)
  Receive Date: 20120208
  Receipt Date: 20120205
  Transmission Date: 20120608
  Serious: No
  Sender: FDA-Public Use
  Company Number: US-PFIZER INC-2011283969

PATIENT
  Sex: Female
  Weight: 28.1 kg

DRUGS (3)
  1. CHILDREN'S ADVIL [Suspect]
     Indication: SINUSITIS
     Dosage: 2 TEASPOONFULS, UNK
     Route: 048
     Dates: start: 20111120, end: 20111121
  2. AMOXICILLIN [Concomitant]
     Indication: PHARYNGEAL DISORDER
     Dosage: 2 TEASPOONFULS, 2 TIMES DAILY
     Route: 048
     Dates: start: 20111114
  3. CHILDREN'S ADVIL [Suspect]
     Indication: PYREXIA

REACTIONS (6)
  - HYPERSENSITIVITY [None]
  - ERYTHEMA [None]
  - RASH [None]
  - DRUG INEFFECTIVE [None]
  - VOMITING [None]
  - PRURITUS [None]
